FAERS Safety Report 22218622 (Version 3)
Quarter: 2023Q2

REPORT INFORMATION
  Report Type: Report from Study
  Country: CN (occurrence: None)
  Receive Date: 20230417
  Receipt Date: 20230420
  Transmission Date: 20230721
  Serious: No
  Sender: FDA-Public Use
  Company Number: CN-ROCHE-3328518

PATIENT
  Age: 74 Year
  Sex: Male
  Weight: 65 kg

DRUGS (27)
  1. ATEZOLIZUMAB [Suspect]
     Active Substance: ATEZOLIZUMAB
     Indication: Transitional cell carcinoma
     Dosage: ON 03/APR/2023, SHE RECEIVED MOST RECENT DOSE OF ATEZOLIZUMAB
     Route: 041
     Dates: start: 20220923
  2. NIFEDIPINE [Concomitant]
     Active Substance: NIFEDIPINE
     Indication: Hypertension
     Route: 048
     Dates: start: 2008, end: 20230110
  3. NIFEDIPINE [Concomitant]
     Active Substance: NIFEDIPINE
     Route: 048
     Dates: start: 20230111
  4. IRBESARTAN [Concomitant]
     Active Substance: IRBESARTAN
     Indication: Hypertension
     Route: 048
     Dates: start: 2021
  5. METFORMIN HYDROCHLORIDE\PIOGLITAZONE HYDROCHLORIDE [Concomitant]
     Active Substance: METFORMIN HYDROCHLORIDE\PIOGLITAZONE HYDROCHLORIDE
     Indication: Diabetes mellitus
     Route: 048
     Dates: start: 2021, end: 20221226
  6. PHOSPHOLIPID [Concomitant]
     Active Substance: PHOSPHOLIPID
     Route: 048
     Dates: start: 20221212, end: 20221224
  7. PHOSPHOLIPID [Concomitant]
     Active Substance: PHOSPHOLIPID
     Route: 048
     Dates: start: 20230207, end: 20230219
  8. AMINOPHYLLINE\CHLORPHENIRAMINE MALEATE\METHOXYPHENAMINE HYDROCHLORIDE\ [Concomitant]
     Active Substance: AMINOPHYLLINE\CHLORPHENIRAMINE MALEATE\METHOXYPHENAMINE HYDROCHLORIDE\NOSCAPINE
     Indication: COVID-19
     Dosage: 2 CAPSULE
     Route: 048
     Dates: start: 20221223, end: 20230102
  9. GANMAOLING 999 [Concomitant]
     Active Substance: ACETAMINOPHEN\CAFFEINE\CHLORPHENIRAMINE MALEATE
     Indication: COVID-19
     Route: 048
     Dates: start: 20221223, end: 20230102
  10. ACETAMINOPHEN\DIHYDROCODEINE BITARTRATE [Concomitant]
     Active Substance: ACETAMINOPHEN\DIHYDROCODEINE BITARTRATE
     Indication: COVID-19
     Route: 048
     Dates: start: 20221223, end: 20221226
  11. GLICLAZIDE [Concomitant]
     Active Substance: GLICLAZIDE
     Indication: Diabetes mellitus
     Route: 048
     Dates: start: 20221226
  12. METFORMIN HYDROCHLORIDE [Concomitant]
     Active Substance: METFORMIN HYDROCHLORIDE
     Indication: Diabetes mellitus
     Route: 048
     Dates: start: 20221226
  13. CEFOTIAM HYDROCHLORIDE [Concomitant]
     Active Substance: CEFOTIAM HYDROCHLORIDE
     Indication: Pneumonia
     Route: 042
     Dates: start: 20230101, end: 20230103
  14. VITAMIN C [Concomitant]
     Active Substance: ASCORBIC ACID
     Indication: Pneumonia
     Route: 042
     Dates: start: 20230101, end: 20230103
  15. CEFOPERAZONE SODIUM\SULBACTAM SODIUM [Concomitant]
     Active Substance: CEFOPERAZONE SODIUM\SULBACTAM SODIUM
     Indication: Pneumonia
     Route: 042
     Dates: start: 20230104, end: 20230109
  16. CEFOPERAZONE SODIUM\SULBACTAM SODIUM [Concomitant]
     Active Substance: CEFOPERAZONE SODIUM\SULBACTAM SODIUM
     Route: 042
     Dates: start: 20230110, end: 20230112
  17. DEXAMETHASONE SODIUM PHOSPHATE [Concomitant]
     Active Substance: DEXAMETHASONE SODIUM PHOSPHATE
     Indication: Pneumonia
     Route: 042
     Dates: start: 20230104, end: 20230106
  18. RIVAROXABAN [Concomitant]
     Active Substance: RIVAROXABAN
     Indication: Embolism arterial
     Route: 048
     Dates: start: 20230104
  19. RANITIDINE HYDROCHLORIDE [Concomitant]
     Active Substance: RANITIDINE HYDROCHLORIDE
     Indication: Pneumonia
     Route: 042
     Dates: start: 20230107, end: 20230112
  20. RANITIDINE HYDROCHLORIDE [Concomitant]
     Active Substance: RANITIDINE HYDROCHLORIDE
     Route: 042
     Dates: start: 20230113, end: 20230118
  21. LEVOFLOXACIN HYDROCHLORIDE [Concomitant]
     Active Substance: LEVOFLOXACIN HYDROCHLORIDE
     Indication: Pneumonia
     Route: 042
     Dates: start: 20230107, end: 20230108
  22. LEVOFLOXACIN HYDROCHLORIDE [Concomitant]
     Active Substance: LEVOFLOXACIN HYDROCHLORIDE
     Route: 042
     Dates: start: 20230113, end: 20230118
  23. METHYLPREDNISOLONE SODIUM SUCCINATE [Concomitant]
     Active Substance: METHYLPREDNISOLONE SODIUM SUCCINATE
     Indication: Pneumonia
     Route: 042
     Dates: start: 20230110, end: 20230112
  24. COMPOUND PARACETAMOL CAFFEINE AND PSEUDOEPHEDRINE HYDROCHLORIDE [Concomitant]
     Indication: Pneumonia
     Route: 048
     Dates: start: 20230111, end: 20230117
  25. AMPICILLIN SODIUM [Concomitant]
     Active Substance: AMPICILLIN SODIUM
     Indication: Pneumonia
     Route: 042
     Dates: start: 20230113, end: 20230118
  26. CEFACLOR [Concomitant]
     Active Substance: CEFACLOR
     Indication: Pneumonia
     Route: 048
     Dates: start: 20230119, end: 20230122
  27. TERBINAFINE HYDROCHLORIDE [Concomitant]
     Active Substance: TERBINAFINE HYDROCHLORIDE
     Indication: Skin infection
     Route: 061
     Dates: start: 20230131, end: 20230308

REACTIONS (1)
  - Atrial fibrillation [Not Recovered/Not Resolved]

NARRATIVE: CASE EVENT DATE: 20221229
